FAERS Safety Report 4725429-3 (Version None)
Quarter: 2005Q3

REPORT INFORMATION
  Report Type: 
  Country: None (occurrence: None)
  Receive Date: 20050721
  Receipt Date: 20050528
  Transmission Date: 20060218
  Serious: No
  Sender: FDA-Public Use
  Company Number: 2005SP001153

PATIENT
  Age: 56 Year
  Sex: 0
  Weight: 78.0187 kg

DRUGS (6)
  1. LUNESTA [Suspect]
     Indication: INSOMNIA
     Dosage: 3 MG;HS;ORAL
     Route: 048
     Dates: start: 20050504, end: 20050501
  2. ADDERALL 30 [Concomitant]
  3. DIOVAN HCT [Concomitant]
  4. ESKALITH [Concomitant]
  5. WELLBUTRIN [Concomitant]
  6. SEROQUEL [Concomitant]

REACTIONS (4)
  - ABNORMAL DREAMS [None]
  - DRUG INEFFECTIVE [None]
  - DYSGEUSIA [None]
  - MIDDLE INSOMNIA [None]
